FAERS Safety Report 21185072 (Version 2)
Quarter: 2023Q4

REPORT INFORMATION
  Report Type: Spontaneous
  Country: CN (occurrence: CN)
  Receive Date: 20220808
  Receipt Date: 20231006
  Transmission Date: 20240110
  Serious: Yes (Hospitalization)
  Sender: FDA-Public Use
  Company Number: CN-BAYER-2022A109669

PATIENT
  Age: 76 Year
  Sex: Female
  Weight: 60 kg

DRUGS (2)
  1. ULTRAVIST [Suspect]
     Active Substance: IOPROMIDE
     Indication: Computerised tomogram head
     Dosage: 100 ML, ONCE
     Route: 041
     Dates: start: 20220720, end: 20220720
  2. ULTRAVIST [Suspect]
     Active Substance: IOPROMIDE
     Indication: Cerebral infarction

REACTIONS (7)
  - Pyrexia [Recovering/Resolving]
  - Tic [Recovering/Resolving]
  - Tremor [Recovering/Resolving]
  - Somnolence [Recovering/Resolving]
  - Speech disorder [Recovering/Resolving]
  - Incorrect drug administration rate [None]
  - Product prescribing issue [None]

NARRATIVE: CASE EVENT DATE: 20220720
